FAERS Safety Report 6268929-X (Version None)
Quarter: 2009Q3

REPORT INFORMATION
  Report Type: 
  Country: None (occurrence: None)
  Receive Date: 20090715
  Receipt Date: 20090709
  Transmission Date: 20100115
  Serious: Yes (Other)
  Sender: FDA-Public Use
  Company Number: US-ELI_LILLY_AND_COMPANY-US200907001756

PATIENT
  Sex: Female

DRUGS (3)
  1. ILETIN [Suspect]
     Dosage: UNK, UNK
     Dates: start: 19620101, end: 19820101
  2. HUMULIN N [Suspect]
     Dates: start: 19820101
  3. LANTUS [Concomitant]
     Dosage: UNK, EACH MORNING

REACTIONS (2)
  - BLINDNESS UNILATERAL [None]
  - EYE HAEMORRHAGE [None]
